FAERS Safety Report 10557394 (Version 1)
Quarter: 2014Q4

REPORT INFORMATION
  Report Type: Spontaneous
  Country: US (occurrence: None)
  Receive Date: 20141030
  Receipt Date: 20141030
  Transmission Date: 20150529
  Serious: Yes (Other)
  Sender: FDA-Public Use
  Company Number: None

PATIENT
  Age: 58 Year
  Sex: Female
  Weight: 44 kg

DRUGS (2)
  1. KLONOPIN [Suspect]
     Active Substance: CLONAZEPAM
     Indication: DYSTONIA
     Dosage: 1 TABLET
     Route: 048
     Dates: start: 20140803, end: 20141012
  2. KLONOPIN [Suspect]
     Active Substance: CLONAZEPAM
     Dosage: 1 TABLET
     Route: 048
     Dates: start: 20140803, end: 20141012

REACTIONS (7)
  - Restlessness [None]
  - Anxiety [None]
  - Quality of life decreased [None]
  - Hallucination [None]
  - Photosensitivity reaction [None]
  - Mental impairment [None]
  - Hyperacusis [None]

NARRATIVE: CASE EVENT DATE: 20140804
